FAERS Safety Report 10017471 (Version 2)
Quarter: 2014Q1

REPORT INFORMATION
  Report Type: Report from Study
  Country: US (occurrence: US)
  Receive Date: 20140318
  Receipt Date: 20140318
  Transmission Date: 20141002
  Serious: Yes (Death)
  Sender: FDA-Public Use
  Company Number: US-ROCHE-1365356

PATIENT
  Age: 73 Year
  Sex: Male

DRUGS (6)
  1. LUCENTIS [Suspect]
     Indication: DIABETIC RETINOPATHY
     Dosage: BOTH EYES
     Route: 050
     Dates: start: 20090805
  2. LUCENTIS [Suspect]
     Indication: DIABETIC RETINAL OEDEMA
  3. METFORMIN [Concomitant]
     Indication: DIABETES MELLITUS
     Route: 048
  4. COUMADIN [Concomitant]
     Route: 048
  5. PLAVIX [Concomitant]
     Route: 048
  6. GLIPIZIDE [Concomitant]
     Indication: DIABETES MELLITUS
     Route: 048

REACTIONS (4)
  - Oesophageal haemorrhage [Fatal]
  - Haemoglobin decreased [Fatal]
  - Cardiac arrest [Fatal]
  - Ejection fraction decreased [Fatal]
